FAERS Safety Report 5611181-6 (Version None)
Quarter: 2008Q1

REPORT INFORMATION
  Report Type: 
  Country: None (occurrence: None)
  Receive Date: 20080201
  Receipt Date: 20080125
  Transmission Date: 20080703
  Serious: Yes (Other)
  Sender: FDA-Public Use
  Company Number: US-SANOFI-SYNTHELABO-A03200706528

PATIENT
  Sex: Male
  Weight: 92.97 kg

DRUGS (6)
  1. SINGULAIR [Concomitant]
     Dosage: UNK
     Route: 065
  2. ASPIRIN [Concomitant]
     Dosage: UNK
     Route: 065
  3. VYTORIN [Concomitant]
     Dosage: 10/40
  4. PLAVIX [Suspect]
     Indication: STENT PLACEMENT
     Route: 048
     Dates: start: 20050301
  5. IBUPROFEN [Concomitant]
     Dosage: UNK
     Route: 065
     Dates: start: 20070601
  6. NITROGLYCERIN [Concomitant]
     Dosage: UNK
     Route: 065

REACTIONS (3)
  - CATARACT [None]
  - MACULAR DEGENERATION [None]
  - VISUAL DISTURBANCE [None]
